FAERS Safety Report 8818241 (Version 1)
Quarter: 2012Q4

REPORT INFORMATION
  Report Type: 
  Country: US (occurrence: US)
  Receive Date: 20121001
  Receipt Date: 20121001
  Transmission Date: 20130627
  Serious: Yes (Death)
  Sender: FDA-Public Use
  Company Number: US-GLAXOSMITHKLINE-A0979407A

PATIENT
  Age: 64 Year
  Sex: Female
  Weight: 65.9 kg

DRUGS (17)
  1. PROMACTA [Suspect]
     Indication: PRODUCT USED FOR UNKNOWN INDICATION
     Dosage: 75MG Per day
     Route: 048
  2. PANTOPRAZOLE [Concomitant]
  3. FLUTICASONE [Concomitant]
  4. PREDNISONE [Concomitant]
  5. ATENOLOL [Concomitant]
  6. ACYCLOVIR [Concomitant]
  7. VALIUM [Concomitant]
  8. GLIPIZIDE [Concomitant]
  9. LORATADINE [Concomitant]
  10. STOOL SOFTENER [Concomitant]
  11. MULTIVITAMIN [Concomitant]
  12. VITAMIN C WITH ROSE HIPS [Concomitant]
  13. ACEROLA [Concomitant]
  14. IRON [Concomitant]
  15. VITAMIN D [Concomitant]
  16. HYDROCHLOROTHIAZIDE + TRIAMTERENE [Concomitant]
  17. VITAMIN B12 [Concomitant]

REACTIONS (3)
  - Death [Fatal]
  - Urinary tract infection [Unknown]
  - Furuncle [Unknown]
